FAERS Safety Report 19078586 (Version 1)
Quarter: 2021Q1

REPORT INFORMATION
  Report Type: Spontaneous
  Country: DE (occurrence: DE)
  Receive Date: 20210331
  Receipt Date: 20210331
  Transmission Date: 20210420
  Serious: Yes (Other)
  Sender: FDA-Public Use
  Company Number: DE-MYLANLABS-2021M1018450

PATIENT
  Age: 53 Year
  Sex: Male
  Weight: 92 kg

DRUGS (2)
  1. METAMIZOL                          /06276701/ [Suspect]
     Active Substance: METAMIZOLE
     Indication: MUSCULOSKELETAL DISCOMFORT
     Dosage: 1 DOSAGE FORM (1 TABLET IS SUFFICIENT)
     Route: 048
  2. PARACETAMOL [Suspect]
     Active Substance: ACETAMINOPHEN
     Indication: MUSCULOSKELETAL DISCOMFORT
     Dosage: 1 DOSAGE FORM (1 TABLET IS SUFFICIENT)
     Route: 048

REACTIONS (4)
  - Penile swelling [Recovering/Resolving]
  - Penile haemorrhage [Recovering/Resolving]
  - Pruritus genital [Recovering/Resolving]
  - Skin exfoliation [Recovering/Resolving]

NARRATIVE: CASE EVENT DATE: 20200304
